FAERS Safety Report 20504574 (Version 2)
Quarter: 2022Q2

REPORT INFORMATION
  Report Type: Report from Study
  Country: US (occurrence: US)
  Receive Date: 20220223
  Receipt Date: 20220610
  Transmission Date: 20220720
  Serious: Yes (Death, Other)
  Sender: FDA-Public Use
  Company Number: US-ABBVIE-22K-163-4285416-00

PATIENT
  Age: 76 Year
  Sex: Female

DRUGS (1)
  1. HUMIRA [Suspect]
     Active Substance: ADALIMUMAB
     Indication: Rheumatoid arthritis
     Dosage: PATIENT TAKEN HUMIRA IN ABDOMEN OR THIGH (ROTATE SITES)
     Route: 058

REACTIONS (3)
  - Post procedural complication [Fatal]
  - Surgery [Fatal]
  - Colon cancer metastatic [Unknown]

NARRATIVE: CASE EVENT DATE: 20220101
